FAERS Safety Report 24257529 (Version 1)
Quarter: 2024Q3

REPORT INFORMATION
  Report Type: Spontaneous
  Country: ZA (occurrence: None)
  Receive Date: 20240828
  Receipt Date: 20240828
  Transmission Date: 20241017
  Serious: Yes (Hospitalization)
  Sender: ASTRAZENECA
  Company Number: 2024A190977

PATIENT
  Age: 55 Year
  Sex: Female

DRUGS (8)
  1. BUDESONIDE\FORMOTEROL [Suspect]
     Active Substance: BUDESONIDE\FORMOTEROL
     Dosage: 160/4.5 MCG, UNKNOWN UNKNOWN
     Route: 055
  2. GELATIN [Concomitant]
     Active Substance: GELATIN
  3. ZOFER RAPITAB [Concomitant]
  4. NUDRATE BLACKCURRANT [Concomitant]
  5. SYNALEVE [Concomitant]
  6. ESOMEPRAZOLE [Concomitant]
     Active Substance: ESOMEPRAZOLE
  7. AMLOC [Concomitant]
  8. SYNALEVE [Concomitant]

REACTIONS (1)
  - Fall [Unknown]
